FAERS Safety Report 4358314-X (Version None)
Quarter: 2004Q2

REPORT INFORMATION
  Report Type: 
  Country: None (occurrence: None)
  Receive Date: 20040511
  Receipt Date: 20040511
  Transmission Date: 20050107
  Serious: Yes (Hospitalization)
  Sender: FDA-Public Use
  Company Number: None

PATIENT
  Age: 75 Year
  Sex: Male
  Weight: 83.9 kg

DRUGS (19)
  1. INSULIN [Suspect]
  2. LATANOPROST [Concomitant]
  3. ISOSORBIDE DINITRATE [Concomitant]
  4. AMITRIPTYLINE HCL [Concomitant]
  5. GLYBURIDE [Concomitant]
  6. GABAPENTIN [Concomitant]
  7. FOSINOPRIL SODIUM [Concomitant]
  8. TRAMADOL HCL [Concomitant]
  9. FERROUS SULFATE TAB [Concomitant]
  10. ATENOLOL [Concomitant]
  11. TERAZOSIN HCL [Concomitant]
  12. LOPERAMIDE HCL [Concomitant]
  13. .. [Concomitant]
  14. ROSIGLITAZONE MALEATE [Concomitant]
  15. PSYLLIUM MUCILLOID [Concomitant]
  16. MORPHINE SULFATE [Concomitant]
  17. VITAMIN E [Concomitant]
  18. MULTIVITAMIN WITH MINERALS [Concomitant]
  19. LOPERAMIDE HCL [Concomitant]

REACTIONS (1)
  - HYPOGLYCAEMIA [None]
